FAERS Safety Report 6682799-7 (Version None)
Quarter: 2010Q2

REPORT INFORMATION
  Report Type: 
  Country: None (occurrence: None)
  Receive Date: 20100413
  Receipt Date: 20100412
  Transmission Date: 20101027
  Serious: Yes (Other)
  Sender: FDA-Public Use
  Company Number: AUR-APL-2010-01005

PATIENT
  Sex: Male

DRUGS (13)
  1. GABAPENTIN [Suspect]
  2. LISINOPRIL [Suspect]
  3. METFORMIN [Suspect]
  4. COLACE [Suspect]
  5. CRESTOR [Suspect]
  6. FAMOTIDINE [Suspect]
  7. FENOFIBRATE [Suspect]
  8. OMEPRAZOLE [Concomitant]
  9. PLAVIX [Suspect]
  10. INSULIN [Suspect]
  11. TOPAMAX [Suspect]
  12. HYDROCHLOROTHIAZIDE [Suspect]
  13. ASPIRIN [Suspect]

REACTIONS (8)
  - CARDIAC DISORDER [None]
  - CARDIOVASCULAR DISORDER [None]
  - DIABETES MELLITUS [None]
  - DIABETIC NEUROPATHY [None]
  - HYPERTENSION [None]
  - NEPHROLITHIASIS [None]
  - OBESITY [None]
  - THYROID DISORDER [None]
